FAERS Safety Report 22176135 (Version 1)
Quarter: 2023Q2

REPORT INFORMATION
  Report Type: Spontaneous
  Country: US (occurrence: None)
  Receive Date: 20230404
  Receipt Date: 20230404
  Transmission Date: 20230721
  Serious: No
  Sender: FDA-Public Use
  Company Number: None

PATIENT
  Sex: Female
  Weight: 64.4 kg

DRUGS (20)
  1. IBRANCE [Suspect]
     Active Substance: PALBOCICLIB
     Indication: Breast cancer female
     Dosage: OTHER FREQUENCY : DAILY X 21 DAYS;?
     Route: 048
     Dates: start: 20221012
  2. LETROZOLE [Concomitant]
     Active Substance: LETROZOLE
  3. XANAX [Concomitant]
     Active Substance: ALPRAZOLAM
  4. LODINE [Concomitant]
     Active Substance: ETODOLAC
  5. ROBAXIN [Concomitant]
     Active Substance: METHOCARBAMOL
  6. ALBUTEROL [Concomitant]
     Active Substance: ALBUTEROL
  7. SINGULAIR [Concomitant]
     Active Substance: MONTELUKAST SODIUM
  8. BREO ELLIPTA [Concomitant]
     Active Substance: FLUTICASONE FUROATE\VILANTEROL TRIFENATATE
  9. LYRICA [Concomitant]
     Active Substance: PREGABALIN
  10. TOPAMAX [Concomitant]
     Active Substance: TOPIRAMATE
  11. CRESTOR [Concomitant]
     Active Substance: ROSUVASTATIN CALCIUM
  12. ZETIA [Concomitant]
     Active Substance: EZETIMIBE
  13. PROZAC [Concomitant]
     Active Substance: FLUOXETINE HYDROCHLORIDE
  14. JANUMET [Concomitant]
     Active Substance: METFORMIN HYDROCHLORIDE\SITAGLIPTIN PHOSPHATE
  15. EVOXAC [Concomitant]
     Active Substance: CEVIMELINE HYDROCHLORIDE
  16. BENICAR [Concomitant]
     Active Substance: OLMESARTAN MEDOXOMIL
  17. NORVASC [Concomitant]
     Active Substance: AMLODIPINE BESYLATE
  18. INSPRA [Concomitant]
     Active Substance: EPLERENONE
  19. SYNTHROID [Concomitant]
     Active Substance: LEVOTHYROXINE SODIUM
  20. BENTYL [Concomitant]
     Active Substance: DICYCLOMINE HYDROCHLORIDE

REACTIONS (1)
  - Anaemia [None]
